FAERS Safety Report 4353764-X (Version None)
Quarter: 2004Q2

REPORT INFORMATION
  Report Type: 
  Country: None (occurrence: None)
  Receive Date: 20040430
  Receipt Date: 20030619
  Transmission Date: 20050107
  Serious: Yes (Hospitalization)
  Sender: FDA-Public Use
  Company Number: KDL040567

PATIENT
  Age: 71 Year
  Sex: Male

DRUGS (1)
  1. EPOGEN [Suspect]
     Indication: RENAL FAILURE CHRONIC
     Dosage: 40000 U, WEEKLY, SC
     Route: 058
     Dates: start: 20020101

REACTIONS (2)
  - HYPERSENSITIVITY [None]
  - PNEUMONIA [None]
